FAERS Safety Report 8934975 (Version 1)
Quarter: 2012Q4

REPORT INFORMATION
  Report Type: 
  Country: IT (occurrence: IT)
  Receive Date: 20121129
  Receipt Date: 20121129
  Transmission Date: 20130627
  Serious: Yes (Hospitalization)
  Sender: FDA-Public Use
  Company Number: IT-BAYER-2012-125140

PATIENT
  Age: 80 Year
  Sex: Female

DRUGS (8)
  1. CARDIOASPIRIN [Suspect]
     Indication: DEEP VENOUS THROMBOSIS PROPHYLAXIS
     Dosage: 100 mg, QD
     Route: 048
     Dates: start: 20110101, end: 20120313
  2. LASIX [Concomitant]
     Dosage: Daily dose 125 mg
     Route: 048
  3. TRIATEC [Concomitant]
     Dosage: Daily dose 2.5 mg
     Route: 048
  4. CORDARONE [Concomitant]
     Dosage: Daily dose 200 mg
     Route: 048
  5. HUMULIN M [INSULIN HUMAN] [Concomitant]
     Dosage: Daily dose 30 iu
     Route: 058
  6. TOTALIP [Concomitant]
     Dosage: Daily dose 20 mg
     Route: 048
  7. ZYLORIC [Concomitant]
     Dosage: Daily dose 150 mg
     Route: 048
  8. KANRENOL [Concomitant]
     Dosage: Daily dose 25 mg
     Route: 048

REACTIONS (2)
  - Epistaxis [Unknown]
  - Malaise [Unknown]
